FAERS Safety Report 6725728-X (Version None)
Quarter: 2010Q2

REPORT INFORMATION
  Report Type: 
  Country: None (occurrence: None)
  Receive Date: 20100514
  Receipt Date: 20100510
  Transmission Date: 20101027
  Serious: Yes (Death, Hospitalization)
  Sender: FDA-Public Use
  Company Number: US-SANOFI-AVENTIS-2010SA027137

PATIENT
  Age: 76 Year
  Sex: Male

DRUGS (6)
  1. TAXOTERE [Suspect]
     Indication: PROSTATE CANCER
     Dosage: EVERY 3 WEEKS
     Route: 041
     Dates: start: 20100120, end: 20100120
  2. TAXOTERE [Suspect]
     Dosage: EVERY 3 WEEKS
     Route: 041
     Dates: start: 20100324, end: 20100324
  3. BLINDED THERAPY [Suspect]
     Indication: PROSTATE CANCER
     Route: 048
     Dates: start: 20100120, end: 20100412
  4. PREDNISONE [Suspect]
     Indication: PROSTATE CANCER
     Route: 048
     Dates: start: 20100120, end: 20100425
  5. DEXAMETHASONE [Suspect]
     Indication: PREMEDICATION
     Dosage: 8 MG AT 12 HRS, 3 HRS, AND 1 HR PRIOR TO DOCETAXEL INFUSION AS PRE-MEDICATION
     Dates: start: 20100120, end: 20100120
  6. DEXAMETHASONE [Suspect]
     Dosage: 8 MG AT 12 HRS, 3 HRS, AND 1 HR PRIOR TO DOCETAXEL INFUSION AS PRE-MEDICATION
     Dates: start: 20100324, end: 20100324

REACTIONS (5)
  - CEREBRAL HAEMORRHAGE [None]
  - INFECTION [None]
  - PAIN IN EXTREMITY [None]
  - SUBARACHNOID HAEMORRHAGE [None]
  - SUBDURAL HAEMATOMA [None]
